FAERS Safety Report 4913714-1 (Version None)
Quarter: 2006Q1

REPORT INFORMATION
  Report Type: 
  Country: None (occurrence: None)
  Receive Date: 20060216
  Receipt Date: 20060113
  Transmission Date: 20060701
  Serious: Yes (Other)
  Sender: FDA-Public Use
  Company Number: PHEH2006US00934

PATIENT
  Age: 41 Year
  Sex: Female
  Weight: 149 kg

DRUGS (5)
  1. TIAZAC [Concomitant]
     Indication: HYPERTENSION
     Dosage: 240 MG, QD
     Route: 048
  2. PROTONIX [Concomitant]
     Indication: GASTROOESOPHAGEAL REFLUX DISEASE
     Dosage: 40 MG, QD
     Route: 048
  3. ZELNORM [Suspect]
     Indication: CONSTIPATION
     Dosage: 6 MG, QD
     Route: 048
     Dates: start: 20051001
  4. ZELNORM [Suspect]
     Dosage: 6 MG, BID
     Route: 048
  5. ZELNORM [Suspect]
     Dosage: 6 MG, QD
     Dates: end: 20060110

REACTIONS (4)
  - DEPRESSION [None]
  - HOMICIDAL IDEATION [None]
  - SUICIDAL IDEATION [None]
  - TREATMENT NONCOMPLIANCE [None]
